FAERS Safety Report 20772568 (Version 1)
Quarter: 2022Q2

REPORT INFORMATION
  Report Type: Spontaneous
  Country: US (occurrence: US)
  Receive Date: 20220502
  Receipt Date: 20220502
  Transmission Date: 20220721
  Serious: Yes (Other)
  Sender: FDA-Public Use
  Company Number: US-drreddys-LIT/USA/22/0149348

PATIENT
  Age: 45 Year
  Sex: Female

DRUGS (15)
  1. HYDROXYZINE HYDROCHLORIDE [Suspect]
     Active Substance: HYDROXYZINE HYDROCHLORIDE
     Indication: Central pain syndrome
  2. INDOCIN [Suspect]
     Active Substance: INDOMETHACIN
     Indication: Central pain syndrome
  3. FLEXERIL [Suspect]
     Active Substance: CYCLOBENZAPRINE HYDROCHLORIDE
     Indication: Central pain syndrome
  4. LAMICTAL [Suspect]
     Active Substance: LAMOTRIGINE
     Indication: Central pain syndrome
  5. NEURONTIN [Suspect]
     Active Substance: GABAPENTIN
     Indication: Central pain syndrome
  6. TRILEPTAL [Suspect]
     Active Substance: OXCARBAZEPINE
     Indication: Central pain syndrome
  7. BOTOX [Suspect]
     Active Substance: ONABOTULINUMTOXINA
     Indication: Central pain syndrome
  8. LYRICA [Suspect]
     Active Substance: PREGABALIN
     Indication: Central pain syndrome
  9. INDERAL [Suspect]
     Active Substance: PROPRANOLOL HYDROCHLORIDE
     Indication: Central pain syndrome
  10. BUSPAR [Suspect]
     Active Substance: BUSPIRONE HYDROCHLORIDE
     Indication: Central pain syndrome
  11. SEROQUEL [Suspect]
     Active Substance: QUETIAPINE FUMARATE
     Indication: Central pain syndrome
  12. CANNABIS SATIVA SUBSP. INDICA TOP [Suspect]
     Active Substance: CANNABIS SATIVA SUBSP. INDICA TOP
     Indication: Central pain syndrome
  13. AIMOVIG [Suspect]
     Active Substance: ERENUMAB-AOOE
     Indication: Central pain syndrome
  14. UBRELVY [Suspect]
     Active Substance: UBROGEPANT
     Indication: Central pain syndrome
  15. BACLOFEN [Suspect]
     Active Substance: BACLOFEN
     Indication: Central pain syndrome

REACTIONS (1)
  - Drug ineffective [Unknown]
